FAERS Safety Report 17103733 (Version 1)
Quarter: 2019Q4

REPORT INFORMATION
  Report Type: Spontaneous
  Country: CA (occurrence: CA)
  Receive Date: 20191203
  Receipt Date: 20191203
  Transmission Date: 20200122
  Serious: Yes (Other)
  Sender: FDA-Public Use
  Company Number: CA-ALLERGAN-1949157US

PATIENT
  Sex: Female

DRUGS (14)
  1. CITALOPRAM HYDROBROMIDE - BP [Suspect]
     Active Substance: CITALOPRAM HYDROBROMIDE
     Indication: MENTAL DISORDER
     Dosage: 1 DF, QD
     Route: 048
  2. SINGULAIR [Concomitant]
     Active Substance: MONTELUKAST SODIUM
     Indication: ASTHMA
     Dosage: 1 DF, QD
     Route: 048
  3. SPIRIVA [Concomitant]
     Active Substance: TIOTROPIUM BROMIDE MONOHYDRATE
     Indication: ASTHMA
     Dosage: 2 DF, QD
     Route: 055
  4. TRAZODONE [Concomitant]
     Active Substance: TRAZODONE HYDROCHLORIDE
     Indication: SLEEP DISORDER
     Dosage: 2 DF, QD
     Route: 048
  5. REACTINE [Concomitant]
     Indication: HYPERSENSITIVITY
     Dosage: 1 DF, QD
     Route: 048
  6. VENTOLIN [Concomitant]
     Active Substance: ALBUTEROL SULFATE
     Indication: ASTHMA
     Dosage: 2 DF, QD
     Route: 055
  7. ZOPICLONE [Suspect]
     Active Substance: ZOPICLONE
     Indication: SLEEP DISORDER
     Dosage: 1 DF, QD
     Route: 048
  8. NASONEX [Concomitant]
     Active Substance: MOMETASONE FUROATE
     Indication: HYPERSENSITIVITY
     Dosage: 4 DF, UNKNOWN
     Route: 055
  9. ZENHALE [Concomitant]
     Active Substance: FORMOTEROL FUMARATE\MOMETASONE FUROATE
     Indication: ASTHMA
     Dosage: 2 DF, Q12H
     Route: 055
  10. OMALIZUMAB. [Suspect]
     Active Substance: OMALIZUMAB
     Indication: CHRONIC OBSTRUCTIVE PULMONARY DISEASE
     Dosage: 225 MG, UNKNOWN
     Route: 058
  11. NASONEX [Concomitant]
     Active Substance: MOMETASONE FUROATE
     Indication: SINUS DISORDER
     Dosage: UNK
     Route: 065
  12. OMALIZUMAB. [Suspect]
     Active Substance: OMALIZUMAB
     Indication: ASTHMA
  13. ATIVAN [Concomitant]
     Active Substance: LORAZEPAM
     Indication: SLEEP DISORDER
     Dosage: 2 DF, UNKNOWN
     Route: 048
  14. MOXIFLOXACIN HYDROCHLORIDE. [Concomitant]
     Active Substance: MOXIFLOXACIN HYDROCHLORIDE
     Indication: PRODUCT USED FOR UNKNOWN INDICATION
     Route: 065

REACTIONS (19)
  - Sputum discoloured [Recovered/Resolved]
  - Heart rate increased [Recovered/Resolved]
  - Chest pain [Recovered/Resolved]
  - Back pain [Recovered/Resolved]
  - Angina pectoris [Recovered/Resolved]
  - Pruritus [Recovered/Resolved]
  - Oxygen saturation decreased [Recovered/Resolved]
  - Respiratory rate increased [Recovered/Resolved]
  - Wheezing [Recovered/Resolved]
  - Injection site bruising [Recovered/Resolved]
  - Rash [Recovered/Resolved]
  - Fatigue [Recovered/Resolved]
  - Oedema peripheral [Recovered/Resolved]
  - Dyspnoea exertional [Recovered/Resolved]
  - Fear [Recovered/Resolved]
  - Productive cough [Recovered/Resolved]
  - Bronchitis [Recovered/Resolved]
  - Dyspnoea [Recovered/Resolved]
  - Product use in unapproved indication [Unknown]
